FAERS Safety Report 7960884-7 (Version None)
Quarter: 2011Q4

REPORT INFORMATION
  Report Type: 
  Country: None (occurrence: None)
  Receive Date: 20111121
  Receipt Date: 20111017
  Transmission Date: 20120403
  Serious: No
  Sender: FDA-Public Use
  Company Number: 1000024759

PATIENT
  Age: 25 Year
  Sex: Female

DRUGS (3)
  1. VIIBRYD [Suspect]
     Indication: DEPRESSION
     Dosage: 10 MG (10 MG, 1 IN 1 D), ORAL
     Route: 048
     Dates: start: 20111005, end: 20111011
  2. VIIBRYD [Suspect]
     Indication: DEPRESSION
     Dosage: 20 MG (20 MG, 1 IN 1 D), ORAL
     Route: 048
     Dates: start: 20111012, end: 20111013
  3. KLONOPIN [Concomitant]

REACTIONS (4)
  - ABDOMINAL DISTENSION [None]
  - FEELING ABNORMAL [None]
  - DYSPNOEA [None]
  - UTERINE PAIN [None]
